FAERS Safety Report 6037851-6 (Version None)
Quarter: 2009Q1

REPORT INFORMATION
  Report Type: 
  Country: None (occurrence: None)
  Receive Date: 20090114
  Receipt Date: 20090114
  Transmission Date: 20090719
  Serious: Yes (Hospitalization, Other)
  Sender: FDA-Public Use
  Company Number: None

PATIENT
  Age: 62 Year
  Sex: Female
  Weight: 77.1115 kg

DRUGS (7)
  1. HYDROXYZINE [Suspect]
     Indication: PRURITUS
     Dosage: 50-100 MG EVERY 4 HRS BY MOUTH
     Route: 048
     Dates: start: 20070604, end: 20070616
  2. HYDROXYZINE [Suspect]
     Indication: URTICARIA
     Dosage: 50-100 MG EVERY 4 HRS BY MOUTH
     Route: 048
     Dates: start: 20070604, end: 20070616
  3. HYDROXYZINE [Suspect]
     Indication: PRURITUS
     Dosage: 50-100 MG EVERY 4 HRS BY MOUTH
     Route: 048
     Dates: start: 20070604, end: 20070617
  4. HYDROXYZINE [Suspect]
     Indication: URTICARIA
     Dosage: 50-100 MG EVERY 4 HRS BY MOUTH
     Route: 048
     Dates: start: 20070604, end: 20070617
  5. PREDNISONE [Concomitant]
  6. RANITIDINE [Concomitant]
  7. TRIAMCINOLONE [Concomitant]

REACTIONS (3)
  - CONVULSION [None]
  - EYE SWELLING [None]
  - INCORRECT DOSE ADMINISTERED [None]
